FAERS Safety Report 4614299-X (Version None)
Quarter: 2005Q1

REPORT INFORMATION
  Report Type: 
  Country: None (occurrence: None)
  Receive Date: 20050315
  Receipt Date: 20050228
  Transmission Date: 20050727
  Serious: Yes (Hospitalization)
  Sender: FDA-Public Use
  Company Number: USA050291667

PATIENT
  Age: 52 Year
  Sex: Male
  Weight: 86 kg

DRUGS (3)
  1. CIALIS [Suspect]
     Indication: ERECTILE DYSFUNCTION
     Dosage: 50 MG
     Dates: start: 20050301
  2. MULTIVITAMIN [Concomitant]
  3. MULTIVITAMIN [Concomitant]

REACTIONS (3)
  - GALLBLADDER DISORDER [None]
  - GASTRIC BYPASS [None]
  - PERFORATED ULCER [None]
